FAERS Safety Report 25569969 (Version 1)
Quarter: 2025Q3

REPORT INFORMATION
  Report Type: Spontaneous
  Country: US (occurrence: US)
  Receive Date: 20250717
  Receipt Date: 20250717
  Transmission Date: 20251021
  Serious: No
  Sender: ELI LILLY AND COMPANY
  Company Number: US-ELI_LILLY_AND_COMPANY-US202507007062

PATIENT
  Age: 67 Year
  Sex: Female

DRUGS (1)
  1. ZEPBOUND [Suspect]
     Active Substance: TIRZEPATIDE
     Indication: Product used for unknown indication
     Route: 058
     Dates: start: 20250630

REACTIONS (7)
  - Groin pain [Unknown]
  - Food intolerance [Unknown]
  - Lymphadenopathy [Unknown]
  - Paraesthesia [Unknown]
  - Nasopharyngitis [Unknown]
  - Sinus headache [Unknown]
  - Abdominal pain upper [Unknown]
